FAERS Safety Report 8225732-9 (Version None)
Quarter: 2012Q1

REPORT INFORMATION
  Report Type: 
  Country: None (occurrence: None)
  Receive Date: 20120321
  Receipt Date: 20120315
  Transmission Date: 20120608
  Serious: Yes (Other)
  Sender: FDA-Public Use
  Company Number: GB-PFIZER INC-2012069588

PATIENT
  Age: 65 Year
  Sex: Male

DRUGS (2)
  1. MYCOPHENOLATE MOFETIL [Concomitant]
     Dosage: 1.5 G, UNK
  2. SIROLIMUS [Suspect]
     Indication: RENAL IMPAIRMENT
     Dosage: UNK

REACTIONS (2)
  - PULMONARY CAVITATION [None]
  - PSEUDOMONAS INFECTION [None]
